FAERS Safety Report 6904046-0 (Version None)
Quarter: 2010Q3

REPORT INFORMATION
  Report Type: 
  Country: None (occurrence: None)
  Receive Date: 20100804
  Receipt Date: 20090305
  Transmission Date: 20110219
  Serious: No
  Sender: FDA-Public Use
  Company Number: US-PFIZER INC-2008155040

PATIENT

DRUGS (2)
  1. LYRICA [Suspect]
     Dosage: UNK
  2. ALL OTHER THERAPEUTIC PRODUCTS [Concomitant]

REACTIONS (2)
  - HEART RATE INCREASED [None]
  - HYPERHIDROSIS [None]
